FAERS Safety Report 5017924-7 (Version None)
Quarter: 2006Q2

REPORT INFORMATION
  Report Type: 
  Country: None (occurrence: None)
  Receive Date: 20060605
  Receipt Date: 20060222
  Transmission Date: 20061013
  Serious: Yes (Hospitalization)
  Sender: FDA-Public Use
  Company Number: FR-AVENTIS-200610765FR

PATIENT
  Age: 62 Year
  Sex: Male
  Weight: 75 kg

DRUGS (4)
  1. LOVENOX [Suspect]
     Route: 058
     Dates: start: 20060125, end: 20060215
  2. AUGMENTIN '125' [Suspect]
     Indication: PNEUMONIA ASPIRATION
     Route: 048
     Dates: start: 20060202
  3. NEURONTIN [Suspect]
     Indication: CONVULSION
     Route: 048
     Dates: start: 20060125
  4. ASPEGIC 1000 [Concomitant]
     Route: 048
     Dates: start: 20060124, end: 20060131

REACTIONS (5)
  - ANAEMIA [None]
  - BICYTOPENIA [None]
  - LEUKOPENIA [None]
  - NEUTROPENIA [None]
  - PNEUMONIA ASPIRATION [None]
